FAERS Safety Report 7534620-2 (Version None)
Quarter: 2011Q2

REPORT INFORMATION
  Report Type: 
  Country: None (occurrence: None)
  Receive Date: 20110609
  Receipt Date: 20110209
  Transmission Date: 20111010
  Serious: Yes (Other)
  Sender: FDA-Public Use
  Company Number: PHHY2011US42100

PATIENT
  Age: 78 Year
  Sex: Male

DRUGS (6)
  1. CLARITIN [Suspect]
     Indication: SINUSITIS
     Dosage: 10 MG, PRN
     Route: 048
  2. OMEPRAZOLE [Suspect]
  3. TEMAZEPAM [Suspect]
  4. METOPROLOL [Suspect]
  5. DICLOFENAC SODIUM [Suspect]
  6. LORAZEPAM [Suspect]

REACTIONS (3)
  - GOUT [None]
  - CEREBROVASCULAR ACCIDENT [None]
  - RHEUMATOID ARTHRITIS [None]
